FAERS Safety Report 14929173 (Version 1)
Quarter: 2018Q2

REPORT INFORMATION
  Report Type: Spontaneous
  Country: US (occurrence: US)
  Receive Date: 20180523
  Receipt Date: 20180523
  Transmission Date: 20180711
  Serious: Yes (Other)
  Sender: FDA-Public Use
  Company Number: US-PERRIGO-18US005244

PATIENT
  Age: 47 Year
  Sex: Female
  Weight: 84.81 kg

DRUGS (2)
  1. HYDROCHLOROTHIAZIDE. [Concomitant]
     Active Substance: HYDROCHLOROTHIAZIDE
     Indication: HYPERTENSION
     Dosage: UNK
     Route: 065
     Dates: start: 2017
  2. DEXTROMETHORPHAN HYDROBROMIDE 3 MG/ML 300 [Suspect]
     Active Substance: DEXTROMETHORPHAN HYDROBROMIDE
     Indication: COUGH
     Dosage: 10 ML, SINGLE
     Route: 048
     Dates: start: 20180511, end: 20180511

REACTIONS (5)
  - Dehydration [Recovered/Resolved]
  - Diarrhoea [Recovered/Resolved]
  - Abdominal pain upper [Not Recovered/Not Resolved]
  - Blood pressure increased [Recovered/Resolved]
  - Dysgeusia [Recovered/Resolved]

NARRATIVE: CASE EVENT DATE: 20180511
